FAERS Safety Report 8145476-1 (Version None)
Quarter: 2012Q1

REPORT INFORMATION
  Report Type: 
  Country: None (occurrence: None)
  Receive Date: 20120217
  Receipt Date: 20101202
  Transmission Date: 20120608
  Serious: Yes (Hospitalization)
  Sender: FDA-Public Use
  Company Number: GB-ASTRAZENECA-2010SE57158

PATIENT
  Age: 53 Year
  Sex: Female
  Weight: 73 kg

DRUGS (7)
  1. CANDESARTAN CILEXETIL [Concomitant]
     Route: 065
  2. ROSUVASTATIN [Concomitant]
     Route: 065
  3. ROSUVASTATIN [Concomitant]
     Route: 065
  4. FELODIPINE [Concomitant]
     Route: 065
  5. FELODIPINE [Concomitant]
     Route: 065
  6. ATENOLOL [Concomitant]
     Route: 065
  7. OMEPRAZOLE [Suspect]
     Indication: DYSPEPSIA
     Route: 048
     Dates: start: 20100927

REACTIONS (3)
  - HYPOAESTHESIA [None]
  - HYPOCALCAEMIA [None]
  - HYPOMAGNESAEMIA [None]
